FAERS Safety Report 9338202 (Version 1)
Quarter: 2013Q2

REPORT INFORMATION
  Report Type: Spontaneous
  Country: US (occurrence: US)
  Receive Date: 20130610
  Receipt Date: 20130610
  Transmission Date: 20140414
  Serious: Yes (Other)
  Sender: FDA-Public Use
  Company Number: US-ALVOGEN-2013AL000255

PATIENT
  Age: 27 Year
  Sex: Female
  Weight: 83.92 kg

DRUGS (3)
  1. MACROBID [Suspect]
     Indication: URINARY NITROGEN INCREASED
     Route: 048
     Dates: start: 20130523, end: 20130524
  2. EPITOL [Concomitant]
     Indication: EPILEPSY
     Route: 048
     Dates: start: 201107
  3. VICODIN [Concomitant]
     Indication: PAIN
     Route: 048
     Dates: start: 20130523, end: 20130523

REACTIONS (1)
  - Grand mal convulsion [Recovered/Resolved]
